FAERS Safety Report 25467515 (Version 1)
Quarter: 2025Q2

REPORT INFORMATION
  Report Type: Spontaneous
  Country: ES (occurrence: ES)
  Receive Date: 20250623
  Receipt Date: 20250623
  Transmission Date: 20250716
  Serious: Yes (Other)
  Sender: Unknown Manufacturer
  Company Number: None

PATIENT

DRUGS (1)
  1. ORITAVANCIN [Suspect]
     Active Substance: ORITAVANCIN
     Indication: Infection
     Route: 042
     Dates: start: 20250516, end: 20250516

REACTIONS (2)
  - Vital functions abnormal [Unknown]
  - Tremor [Recovered/Resolved]

NARRATIVE: CASE EVENT DATE: 20250516
